FAERS Safety Report 6718273-9 (Version None)
Quarter: 2010Q2

REPORT INFORMATION
  Report Type: 
  Country: None (occurrence: None)
  Receive Date: 20100506
  Receipt Date: 20100426
  Transmission Date: 20101027
  Serious: Yes (Hospitalization)
  Sender: FDA-Public Use
  Company Number: 009956

PATIENT
  Sex: Female

DRUGS (1)
  1. CIMZIA [Suspect]
     Indication: CROHN'S DISEASE
     Dosage: (400 MG 1X/MONTH SUBCUTANEOUS)
     Route: 058
     Dates: start: 20090303

REACTIONS (4)
  - ABDOMINAL PAIN LOWER [None]
  - LARGE INTESTINE PERFORATION [None]
  - PROCEDURAL COMPLICATION [None]
  - PROCEDURAL PAIN [None]
